FAERS Safety Report 4869729-5 (Version None)
Quarter: 2005Q4

REPORT INFORMATION
  Report Type: 
  Country: None (occurrence: None)
  Receive Date: 20051223
  Receipt Date: 20051220
  Transmission Date: 20060501
  Serious: Yes (Hospitalization)
  Sender: FDA-Public Use
  Company Number: 2005BI021589

PATIENT
  Age: 69 Year
  Sex: Male

DRUGS (11)
  1. AVONEX [Suspect]
     Indication: MULTIPLE SCLEROSIS
     Dosage: 15 UG; QW; IM
     Route: 030
     Dates: start: 20041210
  2. SOLU-MEDROL [Concomitant]
  3. TRILEPTAL [Concomitant]
  4. NEURONTIN [Concomitant]
  5. FLOMAX [Concomitant]
  6. LIPITOR [Concomitant]
  7. METOPROLOL [Concomitant]
  8. PLAVIX [Concomitant]
  9. ACCUPRIL [Concomitant]
  10. POTASSIUM CHLORIDE [Concomitant]
  11. ZETIA [Concomitant]

REACTIONS (1)
  - MYOCARDIAL INFARCTION [None]
